FAERS Safety Report 9555363 (Version 1)
Quarter: 2013Q3

REPORT INFORMATION
  Report Type: Spontaneous
  Country: US (occurrence: None)
  Receive Date: 20130816
  Receipt Date: 20130816
  Transmission Date: 20140515
  Serious: No
  Sender: FDA-Public Use
  Company Number: US-011952

PATIENT
  Age: 49 Year
  Sex: Female
  Weight: 70.31 kg

DRUGS (2)
  1. PICO-SALAX (NOT SPECIFIED) [Suspect]
     Indication: BOWEL PREPARATION
     Route: 048
     Dates: start: 20130604, end: 20130604
  2. ASPIRIN [Concomitant]

REACTIONS (2)
  - Drug ineffective [None]
  - Treatment noncompliance [None]
